FAERS Safety Report 17708232 (Version 2)
Quarter: 2021Q1

REPORT INFORMATION
  Report Type: Other
  Country: US (occurrence: US)
  Receive Date: 20200425
  Receipt Date: 20210211
  Transmission Date: 20210419
  Serious: No
  Sender: FDA-Public Use
  Company Number: US-ROCHE-2585073

PATIENT
  Age: 49 Year
  Sex: Female
  Weight: 72.64 kg

DRUGS (6)
  1. BACTRIM [Concomitant]
     Active Substance: SULFAMETHOXAZOLE\TRIMETHOPRIM
  2. LEVOTHYROXINE. [Concomitant]
     Active Substance: LEVOTHYROXINE
     Dosage: THYROID
     Route: 048
  3. OCREVUS [Suspect]
     Active Substance: OCRELIZUMAB
     Indication: PRIMARY PROGRESSIVE MULTIPLE SCLEROSIS
     Route: 042
     Dates: start: 20181210
  4. OCREVUS [Suspect]
     Active Substance: OCRELIZUMAB
     Indication: RELAPSING-REMITTING MULTIPLE SCLEROSIS
     Route: 042
     Dates: start: 201812
  5. LEVOTHYROXINE. [Concomitant]
     Active Substance: LEVOTHYROXINE
     Route: 048
     Dates: start: 2014
  6. ATENOLOL. [Concomitant]
     Active Substance: ATENOLOL
     Indication: BLOOD PRESSURE MEASUREMENT
     Route: 048
     Dates: start: 2013

REACTIONS (19)
  - Urinary tract infection [Unknown]
  - Gait disturbance [Unknown]
  - Hypoaesthesia [Not Recovered/Not Resolved]
  - Dry skin [Not Recovered/Not Resolved]
  - Intentional product use issue [Unknown]
  - Feeling abnormal [Unknown]
  - Hyperaesthesia teeth [Not Recovered/Not Resolved]
  - Weight increased [Unknown]
  - Dizziness [Recovering/Resolving]
  - Balance disorder [Unknown]
  - Headache [Unknown]
  - Toothache [Unknown]
  - Hypothyroidism [Unknown]
  - Pain in extremity [Unknown]
  - Back pain [Unknown]
  - Off label use [Unknown]
  - Vitamin D decreased [Unknown]
  - Vertigo [Unknown]
  - Amnesia [Not Recovered/Not Resolved]

NARRATIVE: CASE EVENT DATE: 201912
